FAERS Safety Report 24341050 (Version 1)
Quarter: 2024Q3

REPORT INFORMATION
  Report Type: Spontaneous
  Country: US (occurrence: US)
  Receive Date: 20240919
  Receipt Date: 20240919
  Transmission Date: 20241017
  Serious: No
  Sender: JOHNSON AND JOHNSON
  Company Number: US-JNJFOC-20240919564

PATIENT

DRUGS (7)
  1. FAMOTIDINE [Suspect]
     Active Substance: FAMOTIDINE
     Indication: Mast cell activation syndrome
     Route: 065
  2. XYZAL [Concomitant]
     Active Substance: LEVOCETIRIZINE DIHYDROCHLORIDE
     Indication: Mast cell activation syndrome
     Route: 065
  3. FEXOFENADINE [Concomitant]
     Active Substance: FEXOFENADINE HYDROCHLORIDE
     Indication: Mast cell activation syndrome
     Route: 065
  4. KETOTIFEN [Concomitant]
     Active Substance: KETOTIFEN
     Indication: Mast cell activation syndrome
     Route: 065
  5. CROMOLYN SODIUM [Concomitant]
     Active Substance: CROMOLYN SODIUM
     Indication: Mast cell activation syndrome
     Route: 065
  6. QUERCETIN [Concomitant]
     Active Substance: QUERCETIN
     Indication: Mast cell activation syndrome
     Route: 065
  7. XOLAIR [Concomitant]
     Active Substance: OMALIZUMAB
     Indication: Mast cell activation syndrome
     Route: 065

REACTIONS (1)
  - Product use in unapproved indication [Unknown]
